FAERS Safety Report 10424096 (Version 1)
Quarter: 2014Q3

REPORT INFORMATION
  Report Type: Report from Study
  Country: BR (occurrence: BR)
  Receive Date: 20140902
  Receipt Date: 20140902
  Transmission Date: 20150326
  Serious: Yes (Hospitalization, Other)
  Sender: FDA-Public Use
  Company Number: BR-ABBVIE-14K-020-1276295-00

PATIENT
  Age: 54 Year
  Sex: Female
  Weight: 40 kg

DRUGS (5)
  1. CALCIUM CARBONATE. [Concomitant]
     Active Substance: CALCIUM CARBONATE
     Indication: PRODUCT USED FOR UNKNOWN INDICATION
     Route: 048
  2. ANTIDEPRESSANTS [Concomitant]
     Active Substance: UNSPECIFIED INGREDIENT
     Indication: ANTIDEPRESSANT THERAPY
     Dosage: AT NIGHT
     Route: 048
     Dates: start: 2004
  3. PREDNISONE. [Concomitant]
     Active Substance: PREDNISONE
     Indication: ANKYLOSING SPONDYLITIS
     Route: 048
     Dates: start: 1996
  4. CLONAZEPAM. [Concomitant]
     Active Substance: CLONAZEPAM
     Indication: PAIN
     Dosage: AT NIGHT
     Route: 048
     Dates: start: 2004
  5. HUMIRA [Suspect]
     Active Substance: ADALIMUMAB
     Indication: ANKYLOSING SPONDYLITIS
     Route: 058
     Dates: end: 201311

REACTIONS (4)
  - Hepatomegaly [Recovering/Resolving]
  - Eye infection fungal [Recovering/Resolving]
  - Hepatic infection fungal [Recovering/Resolving]
  - Benign neoplasm [Unknown]

NARRATIVE: CASE EVENT DATE: 201309
